FAERS Safety Report 7577265-0 (Version None)
Quarter: 2011Q2

REPORT INFORMATION
  Report Type: 
  Country: None (occurrence: None)
  Receive Date: 20110621
  Receipt Date: 20110607
  Transmission Date: 20111010
  Serious: Yes (Death, Life-Threatening, Hospitalization)
  Sender: FDA-Public Use
  Company Number: 1713747-2011-00010

PATIENT
  Sex: Female

DRUGS (2)
  1. NEWTON [Concomitant]
  2. DELFLEX 2.5% DEX. LM/LC 5L, 2-PK [Suspect]
     Indication: RENAL FAILURE CHRONIC
     Dosage: INTRAPERITONEALLY
     Route: 033
     Dates: start: 20110607

REACTIONS (4)
  - MYOCARDIAL INFARCTION [None]
  - PERITONITIS [None]
  - POOR QUALITY DRUG ADMINISTERED [None]
  - PRODUCT CONTAMINATION [None]
